FAERS Safety Report 4765880-9 (Version None)
Quarter: 2005Q3

REPORT INFORMATION
  Report Type: 
  Country: None (occurrence: None)
  Receive Date: 20050907
  Receipt Date: 20050829
  Transmission Date: 20060218
  Serious: Yes (Death)
  Sender: FDA-Public Use
  Company Number: LTI2005A00156

PATIENT
  Age: 71 Year
  Sex: Male

DRUGS (11)
  1. ACTOS [Suspect]
     Indication: DIABETES MELLITUS NON-INSULIN-DEPENDENT
     Dosage: 15 MG (15 MG, 1 IN 1 D) ORAL; 30 MG (30 MG, 1 IN 1 D) ORAL
     Route: 048
     Dates: start: 20040507, end: 20040813
  2. ACTOS [Suspect]
     Indication: DIABETES MELLITUS NON-INSULIN-DEPENDENT
     Dosage: 15 MG (15 MG, 1 IN 1 D) ORAL; 30 MG (30 MG, 1 IN 1 D) ORAL
     Route: 048
     Dates: start: 20040813, end: 20041022
  3. ENALAPRIL MALEATE [Concomitant]
  4. ALDALIX (OSYROL-LASIX) [Concomitant]
  5. (ISADIPINE) [Concomitant]
  6. CODARONE (AMIODARONE HYDROCHLORIDE) [Concomitant]
  7. DIGOXIN [Concomitant]
  8. NOVONORM (REPAGLINIDE) [Concomitant]
  9. POTASSIUM CHLORIDE [Concomitant]
  10. FORADIL (FORMETEROL FUMARATE) [Concomitant]
  11. MAXAIR [Concomitant]

REACTIONS (9)
  - AORTIC DILATATION [None]
  - AORTIC VALVE INCOMPETENCE [None]
  - BLOOD SODIUM DECREASED [None]
  - BLOOD UREA ABNORMAL [None]
  - CARDIOMEGALY [None]
  - CONDITION AGGRAVATED [None]
  - DYSPNOEA EXACERBATED [None]
  - FLUID RETENTION [None]
  - SUDDEN DEATH [None]
